FAERS Safety Report 8202563-7 (Version None)
Quarter: 2012Q1

REPORT INFORMATION
  Report Type: 
  Country: None (occurrence: None)
  Receive Date: 20120312
  Receipt Date: 20120306
  Transmission Date: 20120608
  Serious: Yes (Hospitalization)
  Sender: FDA-Public Use
  Company Number: GXKR2012DE001062

PATIENT

DRUGS (5)
  1. HALDOL [Suspect]
     Dosage: 2 MG/DAY
     Route: 048
     Dates: start: 20111216, end: 20111223
  2. METHOTREXATE [Suspect]
     Dosage: FOR SEVERAL YEARS EVERY  7 DAYS
     Dates: end: 20111219
  3. METFORMIN HCL [Suspect]
     Dosage: 2000 MG/DAY
     Route: 048
     Dates: end: 20111223
  4. RAMIPRIL [Concomitant]
     Dosage: 5 MG/DAY
     Route: 048
     Dates: end: 20111230
  5. PANTOPRAZOLE [Concomitant]
     Dosage: 40 MG/DAY
     Route: 048
     Dates: end: 20120125

REACTIONS (4)
  - LIVER FUNCTION TEST ABNORMAL [None]
  - JAUNDICE [None]
  - DISTURBANCE IN ATTENTION [None]
  - C-REACTIVE PROTEIN INCREASED [None]
